FAERS Safety Report 5587248-8 (Version None)
Quarter: 2008Q1

REPORT INFORMATION
  Report Type: 
  Country: None (occurrence: None)
  Receive Date: 20080110
  Receipt Date: 20080102
  Transmission Date: 20080703
  Serious: Yes (Other)
  Sender: FDA-Public Use
  Company Number: US-PFIZER INC-2007082613

PATIENT
  Sex: Female
  Weight: 70.909 kg

DRUGS (1)
  1. CHANTIX [Suspect]
     Indication: SMOKING CESSATION THERAPY

REACTIONS (9)
  - BALANCE DISORDER [None]
  - FEELING ABNORMAL [None]
  - FEELING COLD [None]
  - FEELING DRUNK [None]
  - HEADACHE [None]
  - IMPAIRED DRIVING ABILITY [None]
  - MENTAL DISORDER [None]
  - PERSONALITY CHANGE [None]
  - SOMNOLENCE [None]
